FAERS Safety Report 17623352 (Version 1)
Quarter: 2020Q2

REPORT INFORMATION
  Report Type: Spontaneous
  Country: DE (occurrence: DE)
  Receive Date: 20200403
  Receipt Date: 20200403
  Transmission Date: 20200713
  Serious: Yes (Other)
  Sender: FDA-Public Use
  Company Number: DE-SHIRE-DE202010784

PATIENT

DRUGS (7)
  1. AZATHIOPRINE. [Concomitant]
     Active Substance: AZATHIOPRINE
     Indication: COGAN^S SYNDROME
  2. HUMAN NORMAL IMMUNOGLOBULIN [Suspect]
     Active Substance: HUMAN IMMUNOGLOBULIN G
     Dosage: 70 MILLIGRAM
     Route: 042
     Dates: start: 2016
  3. HUMAN NORMAL IMMUNOGLOBULIN [Suspect]
     Active Substance: HUMAN IMMUNOGLOBULIN G
     Dosage: 60 MILLIGRAM, 1EVERY4WEEKS
     Route: 042
     Dates: start: 2016
  4. PREDNISOLONE. [Concomitant]
     Active Substance: PREDNISOLONE
     Indication: COGAN^S SYNDROME
  5. HUMAN NORMAL IMMUNOGLOBULIN [Suspect]
     Active Substance: HUMAN IMMUNOGLOBULIN G
     Dosage: 1 GRAM PER KILOGRAM, 1EVERY4WEEKS
     Route: 042
     Dates: start: 2010
  6. HUMAN NORMAL IMMUNOGLOBULIN [Suspect]
     Active Substance: HUMAN IMMUNOGLOBULIN G
     Indication: COGAN^S SYNDROME
     Dosage: 2 GRAM PER KILOGRAM; EVERY 4 WEEKS
     Route: 042
     Dates: start: 2010
  7. ACYCLOVIR. [Concomitant]
     Active Substance: ACYCLOVIR
     Indication: LABYRINTHITIS

REACTIONS (11)
  - Gait disturbance [Unknown]
  - Tinnitus [Unknown]
  - Skin lesion inflammation [Unknown]
  - Maternal exposure during pregnancy [Unknown]
  - Keratitis interstitial [Unknown]
  - Paraesthesia [Unknown]
  - Migraine [Recovered/Resolved]
  - Inflammation [Unknown]
  - Nausea [Recovered/Resolved]
  - Vertigo [Unknown]
  - Intentional product use issue [Unknown]

NARRATIVE: CASE EVENT DATE: 2010
